FAERS Safety Report 9376260 (Version 1)
Quarter: 2013Q2

REPORT INFORMATION
  Report Type: Spontaneous
  Country: GB (occurrence: GB)
  Receive Date: 20130630
  Receipt Date: 20130630
  Transmission Date: 20140414
  Serious: Yes (Death)
  Sender: FDA-Public Use
  Company Number: GB-TEVA-415834ISR

PATIENT
  Age: 62 Year
  Sex: Male

DRUGS (2)
  1. OFLOXACIN [Suspect]
     Indication: PROSTATITIS
     Dates: start: 20130419
  2. TAMSULOSIN [Concomitant]
     Indication: URINARY TRACT OBSTRUCTION
     Dates: start: 20130314

REACTIONS (4)
  - Completed suicide [Fatal]
  - Anxiety [Not Recovered/Not Resolved]
  - Suicidal ideation [Not Recovered/Not Resolved]
  - Affect lability [Not Recovered/Not Resolved]
